FAERS Safety Report 24200014 (Version 1)
Quarter: 2024Q3

REPORT INFORMATION
  Report Type: Spontaneous
  Country: US (occurrence: None)
  Receive Date: 20240809
  Receipt Date: 20240809
  Transmission Date: 20241016
  Serious: No
  Sender: Public
  Company Number: None

PATIENT
  Sex: Female

DRUGS (2)
  1. LENALIDOMIDE [Suspect]
     Active Substance: LENALIDOMIDE
     Indication: Plasma cell myeloma
     Dosage: OTHER FREQUENCY : 14DAYSON/7OFF;?
     Route: 048
     Dates: start: 202405
  2. GABAPENTIN [Concomitant]

REACTIONS (4)
  - Pain [None]
  - Sensitive skin [None]
  - Neuralgia [None]
  - Movement disorder [None]
